FAERS Safety Report 10277268 (Version 3)
Quarter: 2014Q3

REPORT INFORMATION
  Report Type: Report from Study
  Country: US (occurrence: US)
  Receive Date: 20140703
  Receipt Date: 20140808
  Transmission Date: 20150326
  Serious: Yes (Other)
  Sender: FDA-Public Use
  Company Number: PHEH2014US004887

PATIENT
  Age: 46 Year
  Sex: Female
  Weight: 68.27 kg

DRUGS (1)
  1. GILENYA [Suspect]
     Active Substance: FINGOLIMOD HYDROCHLORIDE
     Indication: MULTIPLE SCLEROSIS
     Dosage: 0.5 MG, QD
     Route: 048
     Dates: start: 20140205, end: 201406

REACTIONS (8)
  - Oligomenorrhoea [Not Recovered/Not Resolved]
  - White blood cell count abnormal [Unknown]
  - Oedema peripheral [Recovering/Resolving]
  - Anaemia [Unknown]
  - Weight increased [Unknown]
  - Blood iron increased [Unknown]
  - Nephrolithiasis [Recovered/Resolved]
  - Memory impairment [Not Recovered/Not Resolved]

NARRATIVE: CASE EVENT DATE: 20140209
